FAERS Safety Report 10751671 (Version 1)
Quarter: 2015Q1

REPORT INFORMATION
  Report Type: Spontaneous
  Country: CZ (occurrence: CZ)
  Receive Date: 20150130
  Receipt Date: 20150130
  Transmission Date: 20150721
  Serious: Yes (Hospitalization, Other)
  Sender: FDA-Public Use
  Company Number: CZ-WATSON-2015-00782

PATIENT
  Age: 78 Year
  Sex: Female
  Weight: 84 kg

DRUGS (11)
  1. AMLORATIO [Concomitant]
     Indication: HYPERTENSION
     Dosage: AMLORATIO 10 MG; 1 DF DAILY
     Route: 048
  2. PIOGLITAZONE ACTAVIS [Suspect]
     Active Substance: PIOGLITAZONE
     Indication: TYPE 2 DIABETES MELLITUS
     Dosage: 30 MG, DAILY
     Route: 048
     Dates: start: 20131003, end: 20141023
  3. ACTOS [Suspect]
     Active Substance: PIOGLITAZONE HYDROCHLORIDE
     Indication: TYPE 2 DIABETES MELLITUS
     Dosage: UNK
     Route: 048
     Dates: start: 20110113, end: 20131003
  4. NEUROL                             /00595201/ [Concomitant]
     Indication: NERVOUSNESS
     Dosage: UNK; NEUROL 1,0
     Route: 048
  5. EPOETIN ALFA [Concomitant]
     Active Substance: ERYTHROPOIETIN
     Indication: MYELODYSPLASTIC SYNDROME
     Dosage: 4000 IU/1,0 ML; 1 DF EVERY 14 DAYS
     Route: 065
  6. DETRALEX [Concomitant]
     Active Substance: DIOSMIN\HESPERIDIN
     Indication: PERIPHERAL VENOUS DISEASE
     Dosage: 2 DF DAILY
     Route: 048
  7. LOZAP                              /01121602/ [Concomitant]
     Active Substance: LOSARTAN
     Indication: HYPERTENSION
     Dosage: 2 DF, DAILY
     Route: 048
  8. EUCREAS [Concomitant]
     Active Substance: METFORMIN HYDROCHLORIDE\VILDAGLIPTIN
     Indication: TYPE 2 DIABETES MELLITUS
     Dosage: 50 MG/1000MG; 2 DF DAILY
     Route: 048
  9. INDAP [Concomitant]
     Indication: HYPERTENSION
     Dosage: 2.5 MG, DAILY
     Route: 048
  10. DICLOFENAC AL [Concomitant]
     Indication: OSTEOARTHRITIS
     Dosage: UNK; DICLOFENAC AL 50
     Route: 048
  11. BETAXA [Concomitant]
     Indication: HYPERTENSION
     Dosage: 1 DF, DAILY( BETAXA 20)
     Route: 048

REACTIONS (1)
  - Bladder transitional cell carcinoma [Recovered/Resolved]

NARRATIVE: CASE EVENT DATE: 20141015
